FAERS Safety Report 4950523-1 (Version None)
Quarter: 2006Q1

REPORT INFORMATION
  Report Type: 
  Country: None (occurrence: None)
  Receive Date: 20060322
  Receipt Date: 20060314
  Transmission Date: 20060701
  Serious: Yes (Other)
  Sender: FDA-Public Use
  Company Number: IE-GLAXOSMITHKLINE-B0416563A

PATIENT
  Age: 1 Year
  Sex: Female

DRUGS (3)
  1. LANVIS [Suspect]
     Indication: NON-HODGKIN'S LYMPHOMA
     Dosage: 30MG PER DAY
     Route: 048
  2. CYTOSAR [Suspect]
     Indication: NON-HODGKIN'S LYMPHOMA
     Dosage: 41MG PER DAY
     Route: 042
  3. METHOTREXATE [Suspect]
     Indication: NON-HODGKIN'S LYMPHOMA
     Dosage: 8MG PER DAY
     Route: 065

REACTIONS (1)
  - VENOOCCLUSIVE DISEASE [None]
